FAERS Safety Report 14345796 (Version 2)
Quarter: 2018Q1

REPORT INFORMATION
  Report Type: Spontaneous
  Country: US (occurrence: US)
  Receive Date: 20180103
  Receipt Date: 20180220
  Transmission Date: 20180509
  Serious: No
  Sender: FDA-Public Use
  Company Number: US-PFIZER INC-2018001934

PATIENT
  Age: 64 Year
  Sex: Female

DRUGS (2)
  1. XELJANZ XR [Suspect]
     Active Substance: TOFACITINIB CITRATE
     Dosage: 11 MG, UNK
  2. METHOTREXATE SODIUM. [Suspect]
     Active Substance: METHOTREXATE SODIUM
     Dosage: UNK

REACTIONS (8)
  - Diarrhoea [Unknown]
  - Gingival bleeding [Unknown]
  - Pruritus [Unknown]
  - Cough [Unknown]
  - Bone loss [Unknown]
  - Headache [Unknown]
  - Muscle spasms [Unknown]
  - Chest pain [Unknown]

NARRATIVE: CASE EVENT DATE: 20171223
